FAERS Safety Report 4344755-3 (Version None)
Quarter: 2004Q2

REPORT INFORMATION
  Report Type: 
  Country: None (occurrence: None)
  Receive Date: 20040423
  Receipt Date: 20040325
  Transmission Date: 20050107
  Serious: Yes (Death, Hospitalization)
  Sender: FDA-Public Use
  Company Number: PHBS2004NL04144

PATIENT
  Age: 67 Year
  Sex: Male

DRUGS (3)
  1. GLEEVEC [Suspect]
     Indication: CHRONIC MYELOID LEUKAEMIA
     Dosage: 400 MG/DAY
     Route: 048
     Dates: start: 20030401
  2. GLEEVEC [Suspect]
     Dosage: 200 MG/DAY
     Route: 048
  3. GLEEVEC [Suspect]
     Dosage: 400 MG/DAY
     Route: 048
     Dates: end: 20031230

REACTIONS (3)
  - CEREBRAL HAEMORRHAGE [None]
  - SUBDURAL HAEMATOMA [None]
  - THROMBOCYTOPENIA [None]
